FAERS Safety Report 10755933 (Version 3)
Quarter: 2020Q3

REPORT INFORMATION
  Report Type: Spontaneous
  Country: DE (occurrence: DE)
  Receive Date: 20150202
  Receipt Date: 20150327
  Transmission Date: 20201104
  Serious: Yes (Death, Hospitalization)
  Sender: FDA-Public Use
  Company Number: DE-ASTRAZENECA-2015SE08602

PATIENT
  Age: 34 Year
  Sex: Female

DRUGS (44)
  1. METHOTREXATE. [Suspect]
     Active Substance: METHOTREXATE
     Dosage: UNK
     Route: 042
     Dates: start: 19960730
  2. METHOTREXATE. [Suspect]
     Active Substance: METHOTREXATE
     Dosage: UNK
     Route: 042
     Dates: start: 19960730
  3. SUPRARENIN [Suspect]
     Active Substance: EPINEPHRINE
     Route: 041
     Dates: start: 19960817
  4. CIPROBAY (CIPROFLOXACIN) [Suspect]
     Active Substance: CIPROFLOXACIN
     Dosage: UNK
     Route: 041
     Dates: start: 19960817, end: 19960817
  5. CLAFORAN [Suspect]
     Active Substance: CEFOTAXIME SODIUM
     Dosage: UNK
     Route: 041
     Dates: start: 19960805, end: 19960809
  6. PASSPERTIN [Suspect]
     Active Substance: METOCLOPRAMIDE HYDROCHLORIDE
     Dosage: UNK
     Route: 041
     Dates: start: 19960804
  7. VITALIPID [Suspect]
     Active Substance: ERGOCALCIFEROL\PHYTONADIONE\RETINOL\TOCOPHEROL
     Dosage: UNK
     Route: 041
     Dates: start: 19960809, end: 19960816
  8. DEMEROL [Suspect]
     Active Substance: MEPERIDINE HYDROCHLORIDE
     Route: 065
  9. ALLOPURINOL. [Suspect]
     Active Substance: ALLOPURINOL
     Dosage: UNK
     Route: 048
     Dates: start: 19960729, end: 19960812
  10. DORMICUM (MIDAZOLAM) [Suspect]
     Active Substance: MIDAZOLAM HYDROCHLORIDE
     Dosage: UNK
     Route: 041
     Dates: start: 19960818
  11. HUMAN ACTRAPID [Suspect]
     Active Substance: INSULIN HUMAN
     Dosage: UNK
     Route: 058
     Dates: start: 19960816
  12. MERONEM [Suspect]
     Active Substance: MEROPENEM
     Route: 042
     Dates: start: 19960816
  13. DEMEROL [Suspect]
     Active Substance: MEPERIDINE HYDROCHLORIDE
     Dosage: DOLANTIN 25 MG, UNKNOWN
     Route: 041
     Dates: start: 19960816, end: 19960816
  14. LEUCOMAX [Suspect]
     Active Substance: MOLGRAMOSTIM
     Route: 058
     Dates: start: 19960815
  15. GENTAMICIN. [Suspect]
     Active Substance: GENTAMICIN
     Route: 041
     Dates: start: 19960805, end: 19960811
  16. ISOPTIN [Suspect]
     Active Substance: VERAPAMIL HYDROCHLORIDE
     Route: 041
     Dates: start: 19960817, end: 19960817
  17. SOBELIN [Suspect]
     Active Substance: CLINDAMYCIN HYDROCHLORIDE
     Dosage: UNK
     Route: 041
     Dates: start: 19960817, end: 19960817
  18. PRIMAXIN IV [Suspect]
     Active Substance: CILASTATIN SODIUM\IMIPENEM
     Route: 041
     Dates: start: 19960816, end: 19960816
  19. PARACETAMOL [Suspect]
     Active Substance: ACETAMINOPHEN
     Dosage: UNK
     Route: 048
     Dates: start: 19960805, end: 19960811
  20. AMOXICILLIN AND CLAVULANATE POTASSIUM [Suspect]
     Active Substance: AMOXICILLIN\CLAVULANATE POTASSIUM
     Dosage: UNK
     Route: 041
     Dates: start: 19960807, end: 19960811
  21. AMPHOTERICIN B. [Suspect]
     Active Substance: AMPHOTERICIN B
     Dosage: UNK
     Route: 041
     Dates: start: 19960816
  22. DIPIDOLOR [Suspect]
     Active Substance: PIRITRAMIDE
     Dosage: UNK
     Route: 041
     Dates: start: 19960816
  23. HUMANALBUMIN [Suspect]
     Active Substance: ALBUMIN HUMAN
     Dosage: UNK
     Route: 041
     Dates: start: 19960816, end: 19960817
  24. METRONIDAZOLE. [Suspect]
     Active Substance: METRONIDAZOLE
     Dosage: UNK
     Route: 041
     Dates: start: 19960805, end: 19960809
  25. MORPHINE SULFATE. [Suspect]
     Active Substance: MORPHINE SULFATE
     Dosage: UNK
     Route: 041
     Dates: start: 19960808, end: 19960816
  26. MULTIBIONTA [Suspect]
     Active Substance: MINERALS\PROBIOTICS NOS\VITAMINS
     Route: 065
  27. METHOTREXATE. [Suspect]
     Active Substance: METHOTREXATE
     Dosage: UNK
     Route: 042
     Dates: start: 19960802
  28. ANCOTIL [Suspect]
     Active Substance: FLUCYTOSINE
     Dosage: UNK
     Route: 041
     Dates: start: 19960815
  29. NEUPOGEN [Suspect]
     Active Substance: FILGRASTIM
     Indication: NEUTROPENIA
     Dosage: UNK
     Route: 065
     Dates: start: 19960816, end: 19960817
  30. ZIENAM [Suspect]
     Active Substance: CILASTATIN SODIUM\IMIPENEM
     Route: 041
     Dates: start: 19960816, end: 19960816
  31. DOPAMIN [DOPAMINE HYDROCHLORIDE] [Suspect]
     Active Substance: DOPAMINE HYDROCHLORIDE
     Route: 041
     Dates: start: 19960817
  32. OPIUM. [Suspect]
     Active Substance: OPIUM
     Dosage: UNK
     Route: 048
     Dates: start: 19960807, end: 19960818
  33. ZOFRAN [Suspect]
     Active Substance: ONDANSETRON HYDROCHLORIDE
     Dosage: UNK
     Route: 041
     Dates: start: 19960730, end: 19960809
  34. ANTRA [Suspect]
     Active Substance: OMEPRAZOLE
     Route: 041
     Dates: start: 19960730
  35. IMODIUM [Suspect]
     Active Substance: LOPERAMIDE HYDROCHLORIDE
     Dosage: UNK
     Route: 048
     Dates: start: 19960731, end: 19960816
  36. LASIX [Suspect]
     Active Substance: FUROSEMIDE
     Route: 048
     Dates: start: 19960814, end: 19960814
  37. LIQUEMIN [Suspect]
     Active Substance: HEPARIN SODIUM
     Route: 058
     Dates: start: 19960806
  38. SOLU?DECORTIN?H [Suspect]
     Active Substance: PREDNISOLONE SODIUM SUCCINATE
     Dosage: UNK
     Route: 041
     Dates: start: 19960817, end: 19960817
  39. DIFLUCAN [Suspect]
     Active Substance: FLUCONAZOLE
     Route: 048
     Dates: start: 19960730, end: 19960816
  40. VANCOMYCIN [Suspect]
     Active Substance: VANCOMYCIN
     Dosage: UNK
     Route: 041
     Dates: start: 19960811
  41. BIFITERAL [Suspect]
     Active Substance: LACTULOSE
     Dosage: UNK
     Route: 048
     Dates: start: 19960813, end: 19960813
  42. NOVALGIN (METAMIZOLE SODIUM) [Suspect]
     Active Substance: METAMIZOLE SODIUM
     Dosage: UNK
     Route: 041
     Dates: start: 19960811, end: 19960819
  43. PSYQUIL [Suspect]
     Active Substance: TRIFLUPROMAZINE HYDROCHLORIDE
     Dosage: UNK
     Route: 041
     Dates: start: 19960816
  44. TAVEGIL [Suspect]
     Active Substance: CLEMASTINE FUMARATE
     Dosage: UNK
     Route: 041
     Dates: start: 19960816

REACTIONS (14)
  - Pain [Unknown]
  - Pyrexia [Unknown]
  - Hypertension [Unknown]
  - Hyperglycaemia [Unknown]
  - Toxic epidermal necrolysis [Fatal]
  - Rash [Fatal]
  - Shock [Fatal]
  - Stevens-Johnson syndrome [Fatal]
  - Blister [Fatal]
  - Epidermolysis [Fatal]
  - Pruritus [Unknown]
  - Circulatory collapse [Fatal]
  - Lip erosion [Fatal]
  - Fungal infection [Unknown]

NARRATIVE: CASE EVENT DATE: 19960804
